FAERS Safety Report 9381714 (Version 1)
Quarter: 2013Q3

REPORT INFORMATION
  Report Type: Spontaneous
  Country: FR (occurrence: FR)
  Receive Date: 20130703
  Receipt Date: 20130703
  Transmission Date: 20140515
  Serious: Yes (Death, Hospitalization, Other)
  Sender: FDA-Public Use
  Company Number: FR-PFIZER INC-2013196107

PATIENT
  Age: 85 Year
  Sex: Male

DRUGS (1)
  1. CORDARONE [Suspect]
     Indication: ARRHYTHMIA
     Dosage: UNK
     Route: 048
     Dates: start: 1997, end: 20130403

REACTIONS (4)
  - Hypothyroidism [Fatal]
  - Arrhythmia [Fatal]
  - Bronchitis [Unknown]
  - Dehydration [Unknown]
